FAERS Safety Report 5802177-X (Version None)
Quarter: 2008Q3

REPORT INFORMATION
  Report Type: 
  Country: None (occurrence: None)
  Receive Date: 20080702
  Receipt Date: 20080619
  Transmission Date: 20090109
  Serious: Yes (Hospitalization)
  Sender: FDA-Public Use
  Company Number: US023962

PATIENT

DRUGS (2)
  1. BENDAMUSTINE [Suspect]
     Indication: NON-HODGKIN'S LYMPHOMA
     Dosage: 120 MG/M2 CYCLE ONE QD INTRAVENOUS DRIP
     Route: 041
     Dates: start: 20080430, end: 20080501
  2. BENDAMUSTINE [Suspect]
     Indication: NON-HODGKIN'S LYMPHOMA
     Dosage: 120 MG/M2 CYCLE TWO QD INTRAVENOUS DRIP
     Route: 041
     Dates: start: 20080522, end: 20080523

REACTIONS (1)
  - DYSPNOEA [None]
